FAERS Safety Report 9399917 (Version 1)
Quarter: 2013Q3

REPORT INFORMATION
  Report Type: Spontaneous
  Country: BE (occurrence: BE)
  Receive Date: 20130715
  Receipt Date: 20130715
  Transmission Date: 20140515
  Serious: Yes (Hospitalization)
  Sender: FDA-Public Use
  Company Number: BE-B.I. PHARMACEUTICALS,INC./RIDGEFIELD-2013-BL-00340BL

PATIENT
  Age: 89 Year
  Sex: Male

DRUGS (2)
  1. PRADAXA [Suspect]
     Dosage: 220 MG
  2. PRADAXA [Suspect]
     Dosage: 110 MG

REACTIONS (2)
  - Colon neoplasm [Recovered/Resolved]
  - Gastrointestinal haemorrhage [Unknown]
